FAERS Safety Report 8685744 (Version 3)
Quarter: 2015Q1

REPORT INFORMATION
  Report Type: Spontaneous
  Country: US (occurrence: US)
  Receive Date: 20120726
  Receipt Date: 20150112
  Transmission Date: 20150721
  Serious: Yes (Hospitalization)
  Sender: FDA-Public Use
  Company Number: US-GLAXOSMITHKLINE-A0985273A

PATIENT
  Age: 60 Year
  Sex: Female

DRUGS (9)
  1. RANEXA [Concomitant]
     Active Substance: RANOLAZINE
  2. NITROGLYCERIN TABLET [Concomitant]
     Indication: CARDIAC DISORDER
  3. ARIXTRA [Suspect]
     Active Substance: FONDAPARINUX SODIUM
     Indication: BLOOD DISORDER
  4. LIVALO [Concomitant]
     Active Substance: PITAVASTATIN CALCIUM
     Indication: BLOOD CHOLESTEROL ABNORMAL
  5. ARIXTRA [Suspect]
     Active Substance: FONDAPARINUX SODIUM
     Indication: FACTOR V LEIDEN MUTATION
  6. GLYCERYL TRINITRATE [Concomitant]
     Active Substance: NITROGLYCERIN
  7. FONDAPARINUX SODIUM. [Suspect]
     Active Substance: FONDAPARINUX SODIUM
     Indication: THROMBOSIS
  8. ARIXTRA [Suspect]
     Active Substance: FONDAPARINUX SODIUM
     Indication: THROMBOSIS
     Dosage: DOSAGE REDUCED TO 5.5 MG DAILY, THEN TO 2.5 MG DAILY
     Route: 058
     Dates: start: 20120222
  9. FONDAPARINUX SODIUM. [Suspect]
     Active Substance: FONDAPARINUX SODIUM
     Indication: BLOOD DISORDER
     Dosage: UNK, U
     Route: 065

REACTIONS (8)
  - Adverse drug reaction [Unknown]
  - Asthenia [Not Recovered/Not Resolved]
  - Hypotension [Not Recovered/Not Resolved]
  - Chest pain [Not Recovered/Not Resolved]
  - Fatigue [Not Recovered/Not Resolved]
  - Blood test abnormal [Not Recovered/Not Resolved]
  - Injection site haemorrhage [Not Recovered/Not Resolved]
  - Dyspnoea [Not Recovered/Not Resolved]

NARRATIVE: CASE EVENT DATE: 201204
